FAERS Safety Report 19251723 (Version 1)
Quarter: 2021Q2

REPORT INFORMATION
  Report Type: Spontaneous
  Country: CH (occurrence: CH)
  Receive Date: 20210512
  Receipt Date: 20210512
  Transmission Date: 20210717
  Serious: Yes (Other)
  Sender: FDA-Public Use
  Company Number: CH-ANIPHARMA-2021-CH-000027

PATIENT
  Age: 85 Year
  Sex: Female

DRUGS (2)
  1. COMIRNATY [Suspect]
     Active Substance: TOZINAMERAN
     Dosage: 1 DF UNK / 1 DF UNK
     Route: 030
     Dates: start: 20210219, end: 20210219
  2. CANDESARTAN CILEXETIL TABLETS [Suspect]
     Active Substance: CANDESARTAN CILEXETIL
     Indication: PRODUCT USED FOR UNKNOWN INDICATION
     Dosage: 16 MG UNK
     Route: 048

REACTIONS (1)
  - Syncope [Unknown]

NARRATIVE: CASE EVENT DATE: 20210223
